FAERS Safety Report 23762585 (Version 2)
Quarter: 2024Q2

REPORT INFORMATION
  Report Type: Spontaneous
  Country: US (occurrence: US)
  Receive Date: 20240419
  Receipt Date: 20240620
  Transmission Date: 20240715
  Serious: No
  Sender: FDA-Public Use
  Company Number: US-PFIZER INC-202300447063

PATIENT
  Age: 30 Year
  Sex: Female

DRUGS (1)
  1. OXBRYTA [Suspect]
     Active Substance: VOXELOTOR
     Dosage: 1500 MG, 1X/DAY, 500MG, 3 TABLETS ONCE DAILY
     Route: 048
     Dates: start: 20210818

REACTIONS (2)
  - Abdominal discomfort [Unknown]
  - Product dose omission in error [Unknown]
